FAERS Safety Report 23955268 (Version 1)
Quarter: 2024Q2

REPORT INFORMATION
  Report Type: Spontaneous
  Country: MX (occurrence: MX)
  Receive Date: 20240610
  Receipt Date: 20240610
  Transmission Date: 20240715
  Serious: Yes (Hospitalization, Other)
  Sender: FDA-Public Use
  Company Number: MX-NOVITIUMPHARMA-2024MXNVP00990

PATIENT
  Age: 42 Year
  Sex: Male

DRUGS (1)
  1. HYDROXYCHLOROQUINE SULFATE [Suspect]
     Active Substance: HYDROXYCHLOROQUINE SULFATE
     Indication: COVID-19
     Route: 048

REACTIONS (2)
  - Off label use [Unknown]
  - Drug reaction with eosinophilia and systemic symptoms [Recovering/Resolving]
